FAERS Safety Report 15806757 (Version 1)
Quarter: 2019Q1

REPORT INFORMATION
  Report Type: Spontaneous
  Country: US (occurrence: US)
  Receive Date: 20190110
  Receipt Date: 20190110
  Transmission Date: 20190417
  Serious: No
  Sender: FDA-Public Use
  Company Number: US-MYLANLABS-2018M1097514

PATIENT
  Age: 87 Year
  Sex: Male
  Weight: 75 kg

DRUGS (1)
  1. NIFEDIPINE EXTENDED-RELEASE TABLETS, USP [Suspect]
     Active Substance: NIFEDIPINE
     Indication: HYPERTENSION
     Dosage: UNK UNK,
     Route: 048
     Dates: end: 20181227

REACTIONS (1)
  - Blood pressure increased [Unknown]

NARRATIVE: CASE EVENT DATE: 20181227
